FAERS Safety Report 11563986 (Version 1)
Quarter: 2015Q3

REPORT INFORMATION
  Report Type: Spontaneous
  Country: US (occurrence: US)
  Receive Date: 20150928
  Receipt Date: 20150928
  Transmission Date: 20151125
  Serious: Yes (Other)
  Sender: FDA-Public Use
  Company Number: US-SAGENTPRD-2015-US-000024

PATIENT
  Age: 77 Year
  Sex: Female
  Weight: 66 kg

DRUGS (4)
  1. HEPARIN SODIUM INJECTION, MDV, 10 ML, 1000 UNIT/ML [Suspect]
     Active Substance: HEPARIN SODIUM
     Indication: ATHERECTOMY
     Dosage: 10,000 UNITS ONE TIME
     Route: 042
     Dates: start: 20150915, end: 20150915
  2. NO DRUG NAME [Concomitant]
     Route: 042
     Dates: start: 20150915, end: 20150915
  3. NO DRUG NAME [Concomitant]
     Route: 042
     Dates: start: 20150915, end: 20150915
  4. NO DRUG NAME [Concomitant]
     Route: 013
     Dates: start: 20150915, end: 20150915

REACTIONS (1)
  - Drug ineffective [Unknown]

NARRATIVE: CASE EVENT DATE: 20150915
